FAERS Safety Report 6983072-X (Version None)
Quarter: 2010Q3

REPORT INFORMATION
  Report Type: 
  Country: None (occurrence: None)
  Receive Date: 20100914
  Receipt Date: 20100601
  Transmission Date: 20110219
  Serious: Yes (Other)
  Sender: FDA-Public Use
  Company Number: US-PFIZER INC-2010069409

PATIENT
  Sex: Male
  Weight: 77.098 kg

DRUGS (2)
  1. LYRICA [Suspect]
     Indication: PAIN
     Dosage: 75 MG, 2X/DAY
     Route: 048
     Dates: start: 20100201, end: 20100501
  2. LYRICA [Suspect]
     Indication: BURNING SENSATION

REACTIONS (7)
  - BLISTER [None]
  - BURNING SENSATION [None]
  - ERYTHEMA [None]
  - OEDEMA PERIPHERAL [None]
  - PRURITUS [None]
  - SKIN EXFOLIATION [None]
  - SKIN LESION [None]
